FAERS Safety Report 9564450 (Version 2)
Quarter: 2013Q4

REPORT INFORMATION
  Report Type: Spontaneous
  Country: US (occurrence: US)
  Receive Date: 20130930
  Receipt Date: 20131202
  Transmission Date: 20140711
  Serious: Yes (Hospitalization, Other)
  Sender: FDA-Public Use
  Company Number: US-TEVA-434836USA

PATIENT
  Sex: Female

DRUGS (1)
  1. VERAPAMIL [Suspect]

REACTIONS (6)
  - Mental impairment [Unknown]
  - Adverse event [Unknown]
  - Local swelling [Unknown]
  - Peripheral vascular disorder [Unknown]
  - Vision blurred [Unknown]
  - Joint swelling [Unknown]
